FAERS Safety Report 21851461 (Version 1)
Quarter: 2023Q1

REPORT INFORMATION
  Report Type: Spontaneous
  Country: US (occurrence: US)
  Receive Date: 20230112
  Receipt Date: 20230112
  Transmission Date: 20230418
  Serious: Yes (Other)
  Sender: FDA-Public Use
  Company Number: US-002147023-NVSC2023US005061

PATIENT
  Age: 43 Year
  Sex: Female

DRUGS (1)
  1. COSENTYX [Suspect]
     Active Substance: SECUKINUMAB
     Indication: Psoriatic arthropathy
     Dosage: 300 MG, QMO (SUSPENSION), ONE YEAR ON COSENTYX
     Route: 065
     Dates: start: 20220215, end: 20230103

REACTIONS (2)
  - Hepatic lesion [Not Recovered/Not Resolved]
  - Renal disorder [Not Recovered/Not Resolved]
